FAERS Safety Report 23329974 (Version 1)
Quarter: 2023Q4

REPORT INFORMATION
  Report Type: Report from Study
  Country: US (occurrence: US)
  Receive Date: 20231222
  Receipt Date: 20231222
  Transmission Date: 20240110
  Serious: No
  Sender: FDA-Public Use
  Company Number: US-ACADIA PHARMACEUTICALS INC.-ACA-2023-TRF-005596

PATIENT
  Age: 18 Year
  Sex: Female

DRUGS (2)
  1. DAYBUE [Suspect]
     Active Substance: TROFINETIDE
     Route: 065
  2. CLONIDINE [Concomitant]
     Active Substance: CLONIDINE

REACTIONS (1)
  - Middle insomnia [Unknown]
